FAERS Safety Report 20747392 (Version 3)
Quarter: 2022Q2

REPORT INFORMATION
  Report Type: Spontaneous
  Country: US (occurrence: US)
  Receive Date: 20220425
  Receipt Date: 20220629
  Transmission Date: 20220720
  Serious: Yes (Other)
  Sender: FDA-Public Use
  Company Number: US-SA-SAC20220420000188

PATIENT
  Age: 45 Year
  Sex: Female

DRUGS (1)
  1. AUBAGIO [Suspect]
     Active Substance: TERIFLUNOMIDE
     Indication: Multiple sclerosis
     Dosage: 14 MG, QD
     Route: 048
     Dates: start: 202104

REACTIONS (6)
  - Multiple sclerosis relapse [Unknown]
  - Mental impairment [Unknown]
  - Muscle spasms [Not Recovered/Not Resolved]
  - Physical deconditioning [Unknown]
  - Discomfort [Unknown]
  - Drug ineffective [Unknown]
